FAERS Safety Report 17206947 (Version 1)
Quarter: 2019Q4

REPORT INFORMATION
  Report Type: Spontaneous
  Country: JP (occurrence: JP)
  Receive Date: 20191227
  Receipt Date: 20191227
  Transmission Date: 20200122
  Serious: Yes (Other)
  Sender: FDA-Public Use
  Company Number: JP-UCBSA-2019055909

PATIENT
  Age: 15 Year
  Sex: Male

DRUGS (1)
  1. VIMPAT [Suspect]
     Active Substance: LACOSAMIDE
     Indication: PRODUCT USED FOR UNKNOWN INDICATION
     Dosage: 50 MILLIGRAM, ONCE DAILY (QD)
     Route: 048

REACTIONS (2)
  - Epilepsy [Recovered/Resolved]
  - Off label use [Unknown]
